FAERS Safety Report 7039252-0 (Version None)
Quarter: 2010Q4

REPORT INFORMATION
  Report Type: 
  Country: None (occurrence: None)
  Receive Date: 20101012
  Receipt Date: 20101006
  Transmission Date: 20110411
  Serious: No
  Sender: FDA-Public Use
  Company Number: US-PFIZER INC-2010091242

PATIENT
  Sex: Female

DRUGS (2)
  1. NICOTROL [Suspect]
     Dosage: UNK
     Route: 045
  2. NICOTINE [Suspect]
     Dosage: UNK

REACTIONS (3)
  - FEELING JITTERY [None]
  - TOBACCO USER [None]
  - VOMITING [None]
